FAERS Safety Report 15280099 (Version 1)
Quarter: 2018Q3

REPORT INFORMATION
  Report Type: Report from Study
  Country: CN (occurrence: CN)
  Receive Date: 20180815
  Receipt Date: 20180815
  Transmission Date: 20181010
  Serious: Yes (Other)
  Sender: FDA-Public Use
  Company Number: CN-ROCHE-2156909

PATIENT
  Sex: Female

DRUGS (3)
  1. PACLITAXEL. [Suspect]
     Active Substance: PACLITAXEL
     Indication: CERVIX CANCER METASTATIC
     Dosage: ON DAY1
     Route: 065
  2. CISPLATIN. [Suspect]
     Active Substance: CISPLATIN
     Indication: CERVIX CANCER METASTATIC
     Dosage: DAY1 TO DAY3
     Route: 065
  3. CAPECITABINE. [Suspect]
     Active Substance: CAPECITABINE
     Indication: CERVIX CANCER METASTATIC
     Dosage: HIGH?DOSE MAINTENANCE GROUP 1,000MG/M2, TWICE A DAY, ON DAY 1 TO DAY 14, FOR MAINTENANCE TREATMENT?L
     Route: 065

REACTIONS (10)
  - Decreased appetite [Unknown]
  - Neutrophil count decreased [Unknown]
  - Palmar-plantar erythrodysaesthesia syndrome [Unknown]
  - Alopecia [Unknown]
  - White blood cell count decreased [Unknown]
  - Vomiting [Unknown]
  - Diarrhoea [Unknown]
  - Haemoglobin decreased [Unknown]
  - Nausea [Unknown]
  - Stomatitis [Unknown]
